FAERS Safety Report 9786926 (Version 2)
Quarter: 2014Q1

REPORT INFORMATION
  Report Type: Report from Study
  Country: DE (occurrence: TR)
  Receive Date: 20131227
  Receipt Date: 20140115
  Transmission Date: 20141002
  Serious: Yes (Death)
  Sender: FDA-Public Use
  Company Number: DE-ACTELION-A-US2013-92874

PATIENT
  Age: 10 Month
  Sex: Female

DRUGS (1)
  1. VENTAVIS [Suspect]
     Indication: PULMONARY HYPERTENSION
     Dosage: 6 X DAILY WITH HALF DOSAGE
     Route: 055
     Dates: start: 20130706

REACTIONS (2)
  - Respiratory distress [Fatal]
  - Off label use [Unknown]
